FAERS Safety Report 20899187 (Version 1)
Quarter: 2022Q2

REPORT INFORMATION
  Report Type: Spontaneous
  Country: US (occurrence: None)
  Receive Date: 20220601
  Receipt Date: 20220601
  Transmission Date: 20220721
  Serious: Yes (Other)
  Sender: FDA-Public Use
  Company Number: US-Hikma Pharmaceuticals USA Inc.-US-H14001-22-01351

PATIENT
  Sex: Female

DRUGS (1)
  1. AMOXICILLIN [Suspect]
     Active Substance: AMOXICILLIN
     Indication: Pharyngitis streptococcal
     Route: 065

REACTIONS (5)
  - Vomiting [Unknown]
  - Hypersensitivity [Unknown]
  - Ocular hyperaemia [Unknown]
  - Eye swelling [Unknown]
  - Pruritus [Unknown]
